FAERS Safety Report 7430544-X (Version None)
Quarter: 2011Q2

REPORT INFORMATION
  Report Type: 
  Country: None (occurrence: None)
  Receive Date: 20110421
  Receipt Date: 20101018
  Transmission Date: 20111010
  Serious: No
  Sender: FDA-Public Use
  Company Number: US-ASTRAZENECA-2010SE11094

PATIENT
  Age: 50 Year
  Sex: Female
  Weight: 99.3 kg

DRUGS (13)
  1. MAGNESIUM [Concomitant]
  2. DILTIAZEM [Concomitant]
  3. METOPROLOL SUCCINATE [Suspect]
     Route: 048
  4. METOPROLOL SUCCINATE [Suspect]
     Dosage: METOPROLOL SUCCINATE (WATSON'S) 50 MG
     Route: 048
     Dates: start: 20100204, end: 20100216
  5. CALCIUM [Concomitant]
  6. DIOVAN HCT [Concomitant]
  7. COUMADIN [Concomitant]
  8. LASIX [Concomitant]
  9. METOPROLOL SUCCINATE [Suspect]
     Route: 048
     Dates: end: 20100204
  10. METOPROLOL TARTRATE [Suspect]
     Route: 048
  11. METOPROLOL SUCCINATE [Suspect]
     Route: 048
     Dates: start: 20100216
  12. AMLODIPINE BESYLATE [Concomitant]
  13. IMURAN [Concomitant]

REACTIONS (8)
  - LEFT VENTRICULAR END-DIASTOLIC PRESSURE INCREASED [None]
  - VISION BLURRED [None]
  - DYSPNOEA [None]
  - POLYURIA [None]
  - HYPERMETROPIA [None]
  - PRESBYOPIA [None]
  - VISUAL IMPAIRMENT [None]
  - PALPITATIONS [None]
